FAERS Safety Report 7428684-4 (Version None)
Quarter: 2011Q2

REPORT INFORMATION
  Report Type: 
  Country: None (occurrence: None)
  Receive Date: 20110421
  Receipt Date: 20110415
  Transmission Date: 20111010
  Serious: No
  Sender: FDA-Public Use
  Company Number: US-BIOGENIDEC-2011BI014289

PATIENT
  Sex: Female

DRUGS (2)
  1. AVONEX [Suspect]
     Indication: MULTIPLE SCLEROSIS
     Route: 030
     Dates: start: 20110325
  2. DIURETIC (NOS) [Concomitant]
     Indication: HYPERTENSION

REACTIONS (6)
  - HYPERAESTHESIA [None]
  - DIZZINESS [None]
  - NAUSEA [None]
  - HYPERTENSION [None]
  - INFLUENZA LIKE ILLNESS [None]
  - FATIGUE [None]
